FAERS Safety Report 25808677 (Version 1)
Quarter: 2025Q3

REPORT INFORMATION
  Report Type: Report from Study
  Country: US (occurrence: US)
  Receive Date: 20250916
  Receipt Date: 20250916
  Transmission Date: 20251021
  Serious: Yes (Other)
  Sender: MYLAN
  Company Number: US-MYLANLABS-2025M1078355

PATIENT
  Age: 74 Year
  Sex: Female
  Weight: 36.3 kg

DRUGS (4)
  1. YUPELRI [Suspect]
     Active Substance: REVEFENACIN
     Indication: Chronic obstructive pulmonary disease
     Dosage: 175 MICROGRAM PER 3 MILLILITER, QD (ONCE DAILY, VIA NEBULIZER)
     Dates: start: 20250630, end: 20250904
  2. YUPELRI [Suspect]
     Active Substance: REVEFENACIN
     Dosage: 175 MICROGRAM PER 3 MILLILITER, QD (ONCE DAILY, VIA NEBULIZER)
     Route: 055
     Dates: start: 20250630, end: 20250904
  3. YUPELRI [Suspect]
     Active Substance: REVEFENACIN
     Dosage: 175 MICROGRAM PER 3 MILLILITER, QD (ONCE DAILY, VIA NEBULIZER)
     Route: 055
     Dates: start: 20250630, end: 20250904
  4. YUPELRI [Suspect]
     Active Substance: REVEFENACIN
     Dosage: 175 MICROGRAM PER 3 MILLILITER, QD (ONCE DAILY, VIA NEBULIZER)
     Dates: start: 20250630, end: 20250904

REACTIONS (1)
  - Dyspnoea [Recovered/Resolved]

NARRATIVE: CASE EVENT DATE: 20250630
